FAERS Safety Report 17203059 (Version 4)
Quarter: 2020Q1

REPORT INFORMATION
  Report Type: Spontaneous
  Country: US (occurrence: US)
  Receive Date: 20191226
  Receipt Date: 20200220
  Transmission Date: 20200409
  Serious: No
  Sender: FDA-Public Use
  Company Number: US-PFIZER INC-2019256166

PATIENT
  Age: 58 Year
  Sex: Female
  Weight: 83.9 kg

DRUGS (3)
  1. LYRICA [Suspect]
     Active Substance: PREGABALIN
     Dosage: 100 MG, 1X/DAY(1 CAPSULE AT BEDTIME 90 DAYS)
     Route: 048
     Dates: start: 201606
  2. TRAMADOL. [Concomitant]
     Active Substance: TRAMADOL
     Dosage: UNK
     Dates: start: 201601
  3. LYRICA [Suspect]
     Active Substance: PREGABALIN
     Indication: FIBROMYALGIA
     Dosage: 75 MG, 2X/DAY(1 CAPSULE TWICE A DAY 90 DAYS)
     Route: 048
     Dates: start: 201606

REACTIONS (4)
  - Restless legs syndrome [Unknown]
  - Intentional product misuse [Unknown]
  - Poor quality sleep [Not Recovered/Not Resolved]
  - Back disorder [Unknown]
